FAERS Safety Report 23155599 (Version 1)
Quarter: 2023Q4

REPORT INFORMATION
  Report Type: Spontaneous
  Country: US (occurrence: US)
  Receive Date: 20231107
  Receipt Date: 20231107
  Transmission Date: 20240110
  Serious: No
  Sender: FDA-Public Use
  Company Number: US-SA-SAC20231030000716

PATIENT
  Sex: Male

DRUGS (17)
  1. DUPIXENT [Suspect]
     Active Substance: DUPILUMAB
     Indication: Asthma
     Dosage: 300 MG, QOW
     Route: 058
     Dates: start: 20220513
  2. ADVAIR HFA [Concomitant]
     Active Substance: FLUTICASONE PROPIONATE\SALMETEROL XINAFOATE
  3. ALBUTEROL SULFATE [Concomitant]
     Active Substance: ALBUTEROL SULFATE
  4. AMLODIPINE [Concomitant]
     Active Substance: AMLODIPINE BESYLATE
  5. ANUCORT-HC [Concomitant]
     Active Substance: HYDROCORTISONE ACETATE
  6. ARNUITY ELLIPTA [Concomitant]
     Active Substance: FLUTICASONE FUROATE
  7. INH [Concomitant]
     Active Substance: ISONIAZID
     Dosage: 25MG
  8. CLOBETASOL [Concomitant]
     Active Substance: CLOBETASOL
  9. DIAZEPAM [Concomitant]
     Active Substance: DIAZEPAM
  10. DIAZEPAM [Concomitant]
     Active Substance: DIAZEPAM
  11. DIAZEPAM [Concomitant]
     Active Substance: DIAZEPAM
  12. FLUTICASONE PROPIONATE\SALMETEROL XINAFOATE [Concomitant]
     Active Substance: FLUTICASONE PROPIONATE\SALMETEROL XINAFOATE
  13. IBUPROFEN [Concomitant]
     Active Substance: IBUPROFEN
  14. LISINOPRIL [Concomitant]
     Active Substance: LISINOPRIL
  15. MONTELUKAST [Concomitant]
     Active Substance: MONTELUKAST SODIUM
  16. PREDNISONE [Concomitant]
     Active Substance: PREDNISONE
  17. TIZANIDINE [Concomitant]
     Active Substance: TIZANIDINE

REACTIONS (1)
  - Asthma [Unknown]
